FAERS Safety Report 15374540 (Version 1)
Quarter: 2018Q3

REPORT INFORMATION
  Report Type: Spontaneous
  Country: US (occurrence: US)
  Receive Date: 20180905
  Receipt Date: 20180905
  Transmission Date: 20181010
  Serious: No
  Sender: FDA-Public Use
  Company Number: None

PATIENT
  Age: 71 Year
  Sex: Female

DRUGS (3)
  1. REPATHA [Suspect]
     Active Substance: EVOLOCUMAB
     Indication: CORONARY ARTERY BYPASS
     Dosage: ?          OTHER FREQUENCY:OTHER;?SUMMER 2017 ? PRESENT
     Route: 058
     Dates: start: 2017
  2. REPATHA [Suspect]
     Active Substance: EVOLOCUMAB
     Indication: ARTERIOSCLEROSIS
     Dosage: ?          OTHER FREQUENCY:OTHER;?SUMMER 2017 ? PRESENT
     Route: 058
     Dates: start: 2017
  3. REPATHA [Suspect]
     Active Substance: EVOLOCUMAB
     Indication: HYPERLIPIDAEMIA
     Dosage: ?          OTHER FREQUENCY:OTHER;?SUMMER 2017 ? PRESENT
     Route: 058
     Dates: start: 2017

REACTIONS (1)
  - Alopecia [None]

NARRATIVE: CASE EVENT DATE: 20180905
